FAERS Safety Report 9180796 (Version 1)
Quarter: 2013Q1

REPORT INFORMATION
  Report Type: Spontaneous
  Country: US (occurrence: US)
  Receive Date: 20130322
  Receipt Date: 20130322
  Transmission Date: 20140127
  Serious: Yes (Hospitalization, Other)
  Sender: FDA-Public Use
  Company Number: US-JNJFOC-20130305827

PATIENT
  Age: 63 None
  Sex: Male
  Weight: 78.02 kg

DRUGS (9)
  1. REMICADE [Suspect]
     Indication: PRODUCT USED FOR UNKNOWN INDICATION
     Route: 042
     Dates: start: 2012, end: 201201
  2. HUMIRA [Suspect]
     Indication: RHEUMATOID ARTHRITIS
     Dosage: 2008 OR 2009
     Route: 065
  3. HUMIRA [Suspect]
     Indication: RHEUMATOID ARTHRITIS
     Route: 065
     Dates: start: 201212
  4. FLAGYL [Suspect]
     Indication: PRODUCT USED FOR UNKNOWN INDICATION
     Route: 065
     Dates: start: 201302, end: 201302
  5. METHOTREXATE [Concomitant]
     Route: 065
  6. BUDESONIDE [Concomitant]
     Route: 065
  7. LISINOPRIL [Concomitant]
     Indication: HYPERTENSION
     Route: 065
  8. PRAVASTATIN [Concomitant]
     Route: 065
  9. FOLIC ACID [Concomitant]
     Route: 065

REACTIONS (4)
  - Renal impairment [Recovered/Resolved]
  - Lung infection [Recovered/Resolved]
  - Crohn^s disease [Recovered/Resolved]
  - Chromaturia [Recovered/Resolved]
